FAERS Safety Report 7563582-7 (Version None)
Quarter: 2011Q2

REPORT INFORMATION
  Report Type: 
  Country: None (occurrence: None)
  Receive Date: 20110622
  Receipt Date: 20110616
  Transmission Date: 20111010
  Serious: Yes (Other)
  Sender: FDA-Public Use
  Company Number: US-ABBOTT-11P-163-0732790-00

PATIENT
  Sex: Male
  Weight: 88.53 kg

DRUGS (2)
  1. HUMIRA [Suspect]
     Indication: PSORIASIS
     Route: 058
     Dates: start: 20100701, end: 20101101
  2. HUMIRA [Suspect]
     Route: 058
     Dates: start: 20110301

REACTIONS (2)
  - ARTHRALGIA [None]
  - MENISCUS LESION [None]
